FAERS Safety Report 8555331-0 (Version None)
Quarter: 2012Q3

REPORT INFORMATION
  Report Type: 
  Country: None (occurrence: None)
  Receive Date: 20120731
  Receipt Date: 20120314
  Transmission Date: 20120928
  Serious: No
  Sender: FDA-Public Use
  Company Number: US-ASTRAZENECA-2011SE37653

PATIENT
  Age: 32 Year
  Sex: Male
  Weight: 93 kg

DRUGS (7)
  1. SEROQUEL [Suspect]
     Indication: ANGER
     Route: 048
     Dates: start: 20080101
  2. SEROQUEL [Suspect]
     Indication: AGITATION
     Route: 048
     Dates: start: 20080101
  3. OMEPRAZOLE [Concomitant]
     Indication: DYSPEPSIA
     Route: 048
  4. LAMICTAL [Concomitant]
  5. SEROQUEL [Suspect]
     Indication: TREMOR
     Route: 048
     Dates: start: 20080101
  6. PROZAC [Concomitant]
  7. KLONOPIN [Concomitant]

REACTIONS (8)
  - BIPOLAR DISORDER [None]
  - ANGER [None]
  - VOMITING [None]
  - HYPERHIDROSIS [None]
  - AGITATION [None]
  - DRUG WITHDRAWAL SYNDROME [None]
  - TREMOR [None]
  - DRUG DOSE OMISSION [None]
